FAERS Safety Report 18399831 (Version 1)
Quarter: 2020Q4

REPORT INFORMATION
  Report Type: Spontaneous
  Country: US (occurrence: US)
  Receive Date: 20201019
  Receipt Date: 20201019
  Transmission Date: 20210114
  Serious: No
  Sender: FDA-Public Use
  Company Number: US-ALLERGAN-2027123US

PATIENT
  Sex: Female

DRUGS (5)
  1. VRAYLAR [Suspect]
     Active Substance: CARIPRAZINE
     Dosage: 1.5 MG, QD
     Route: 048
     Dates: start: 20191018
  2. BENZTROPINE. [Concomitant]
     Active Substance: BENZTROPINE
  3. VRAYLAR [Suspect]
     Active Substance: CARIPRAZINE
     Indication: BIPOLAR DISORDER
     Dosage: 4.5 MG, QD
     Dates: start: 20200221
  4. LAMICTAL [Concomitant]
     Active Substance: LAMOTRIGINE
  5. KLONOPIN [Concomitant]
     Active Substance: CLONAZEPAM

REACTIONS (2)
  - Oculogyric crisis [Unknown]
  - Akathisia [Unknown]
